FAERS Safety Report 21295087 (Version 4)
Quarter: 2023Q1

REPORT INFORMATION
  Report Type: Report from Study
  Country: US (occurrence: US)
  Receive Date: 20220905
  Receipt Date: 20230316
  Transmission Date: 20230418
  Serious: Yes (Life-Threatening, Hospitalization)
  Sender: FDA-Public Use
  Company Number: US-JNJFOC-20220858153

PATIENT

DRUGS (31)
  1. NIRAPARIB [Suspect]
     Active Substance: NIRAPARIB
     Indication: Prostate cancer
     Dosage: 2 DF REGULAR-STRENGTH FDC (PLACEBO)
     Route: 048
     Dates: start: 20220519, end: 20220718
  2. PLACEBO [Suspect]
     Active Substance: UNSPECIFIED INGREDIENT
     Indication: Prostate cancer
     Dosage: 2 DF REGULAR-STRENGTH FDC (PLACEBO)
     Route: 048
     Dates: start: 20220519, end: 20220718
  3. ABIRATERONE ACETATE [Suspect]
     Active Substance: ABIRATERONE ACETATE
     Indication: Prostate cancer
     Dosage: 4 DF (LAST DOSE 05-AUG-2022)
     Route: 048
     Dates: start: 20220519, end: 20220805
  4. PREDNISONE [Concomitant]
     Active Substance: PREDNISONE
     Indication: Prostate cancer
     Dosage: 5 MG
     Route: 048
     Dates: start: 20220519, end: 20220805
  5. ATENOLOL [Concomitant]
     Active Substance: ATENOLOL
     Indication: Hypertension
     Dosage: 25 MG, QD
     Route: 048
     Dates: start: 20090521
  6. LISINOPRIL [Concomitant]
     Active Substance: LISINOPRIL
     Indication: Hypertension
     Dosage: 20 MG, QD
     Route: 048
     Dates: start: 20100701
  7. LATANOPROST [Concomitant]
     Active Substance: LATANOPROST
     Indication: Open angle glaucoma
     Dosage: 1 GTT, QD
     Route: 047
     Dates: start: 20120509
  8. ATORVASTATIN [Concomitant]
     Active Substance: ATORVASTATIN
     Indication: Hyperlipidaemia
     Dosage: 80 MG, QD
     Route: 048
     Dates: start: 20121025
  9. DORZOLAMIDE\TIMOLOL [Concomitant]
     Active Substance: DORZOLAMIDE\TIMOLOL
     Indication: Open angle glaucoma
     Dosage: 1 GTT, BID
     Route: 047
     Dates: start: 20121204
  10. DOCUSATE [Concomitant]
     Active Substance: DOCUSATE
     Indication: Constipation prophylaxis
     Dosage: 100 MG, PRN (AS NECESSARY)
     Route: 048
     Dates: start: 20130314
  11. NPH INSULIN [Concomitant]
     Active Substance: INSULIN BEEF
     Indication: Type 2 diabetes mellitus
     Dosage: DOSE 13 (UNITS NOT SPECIFIED)
     Route: 058
     Dates: start: 20131010
  12. NPH INSULIN [Concomitant]
     Active Substance: INSULIN BEEF
     Dosage: DOSE 10 (UNITS NOT SPECIFIED)
     Route: 058
     Dates: start: 20131010
  13. BRIMONIDINE [Concomitant]
     Active Substance: BRIMONIDINE TARTRATE
     Indication: Open angle glaucoma
     Dosage: 1 GTT, TID
     Route: 047
     Dates: start: 20150511
  14. DEXTRAN 70 AND HYPROMELLOSE [Concomitant]
     Indication: Dry eye
     Dosage: 1 GTT, PRN (1 DROP AS NECESSARY)
     Route: 047
     Dates: start: 20170503
  15. TAMSULOSIN [Concomitant]
     Active Substance: TAMSULOSIN
     Indication: Lower urinary tract symptoms
     Dosage: 0.4 MG, QD
     Route: 048
     Dates: start: 20220309
  16. ELIGARD [Concomitant]
     Active Substance: LEUPROLIDE ACETATE
     Indication: Prostate cancer
     Dosage: 45 MG
     Route: 058
     Dates: start: 20220421
  17. HUMAN RED BLOOD CELL [Concomitant]
     Active Substance: HUMAN RED BLOOD CELL
     Indication: Product used for unknown indication
     Dosage: UNK
     Route: 065
  18. LIDOCAINE [Concomitant]
     Active Substance: LIDOCAINE
     Indication: Rib fracture
     Dosage: 1 DF, PRN (AS NECESSARY)
     Route: 062
     Dates: start: 20220702
  19. LIDOCAINE [Concomitant]
     Active Substance: LIDOCAINE
     Indication: Prostate cancer
     Dosage: 0.1 MG
     Route: 058
     Dates: start: 20220420
  20. ENOXAPARIN [Concomitant]
     Active Substance: ENOXAPARIN
     Indication: Thrombosis prophylaxis
     Dosage: 40 MG, QD
     Route: 058
     Dates: start: 20220728, end: 20220728
  21. ENOXAPARIN [Concomitant]
     Active Substance: ENOXAPARIN
     Dosage: 30 MG
     Route: 058
     Dates: start: 20220806, end: 20220806
  22. PRAZOSIN [Concomitant]
     Active Substance: PRAZOSIN
     Indication: Post-traumatic stress disorder
     Dosage: 1 ?G QD
     Route: 048
     Dates: start: 20170615
  23. FOLIC ACID [Concomitant]
     Active Substance: FOLIC ACID
     Indication: Anaemia
     Dosage: 1 MG, QD
     Route: 048
     Dates: start: 20220728
  24. ASPIRIN [Concomitant]
     Active Substance: ASPIRIN
     Indication: Prophylaxis
     Dosage: 325 MG
     Route: 048
     Dates: start: 20220806, end: 20220806
  25. ASPIRIN [Concomitant]
     Active Substance: ASPIRIN
     Indication: Prophylaxis
     Dosage: 81 MG, QD
     Route: 048
     Dates: start: 20220807
  26. ROSUVASTATIN [Concomitant]
     Active Substance: ROSUVASTATIN
     Indication: Hyperlipidaemia
     Dosage: 20 MG, QD
     Route: 048
     Dates: start: 20220630
  27. CARVEDILOL [Concomitant]
     Active Substance: CARVEDILOL
     Indication: Hypertension
     Dosage: 3.125 MG, QD
     Route: 048
     Dates: start: 20220806, end: 20220807
  28. CYCLOBENZAPRINE [Concomitant]
     Active Substance: CYCLOBENZAPRINE
     Indication: Back pain
     Dosage: 5 MG, PRN (AS NECESSARY)
     Route: 048
     Dates: start: 20171206
  29. ACETAMINOPHEN [Concomitant]
     Active Substance: ACETAMINOPHEN
     Indication: Back pain
     Dosage: 650 MG, PRN (AS NECESSARY)
     Route: 048
     Dates: start: 20191031
  30. AMLODIPINE [Concomitant]
     Active Substance: AMLODIPINE BESYLATE
     Indication: Hypertension
     Dosage: 10 MG, QD
     Route: 048
     Dates: start: 20220214
  31. SULFUR HEXAFLUORIDE [Concomitant]
     Active Substance: SULFUR HEXAFLUORIDE
     Indication: Echocardiogram
     Dosage: 25 MG
     Route: 042
     Dates: start: 20220805, end: 20220805

REACTIONS (2)
  - Acute kidney injury [Recovered/Resolved]
  - Anaemia [Recovered/Resolved]

NARRATIVE: CASE EVENT DATE: 20220805
